FAERS Safety Report 6555135-4 (Version None)
Quarter: 2010Q1

REPORT INFORMATION
  Report Type: 
  Country: None (occurrence: None)
  Receive Date: 20100126
  Receipt Date: 20100126
  Transmission Date: 20100710
  Serious: Yes (Other)
  Sender: FDA-Public Use
  Company Number: None

PATIENT
  Age: 10 Year
  Sex: Female
  Weight: 37.9 kg

DRUGS (3)
  1. INTUNIV [Suspect]
     Indication: ATTENTION DEFICIT/HYPERACTIVITY DISORDER
     Dosage: 1 MG, 1X/DAY:QD, ORAL 2 MG, 1X/DAY:QD, ORAL 1 MG, 1X/DAY:QD, ORAL
     Route: 048
     Dates: start: 20091104, end: 20091110
  2. INTUNIV [Suspect]
     Indication: ATTENTION DEFICIT/HYPERACTIVITY DISORDER
     Dosage: 1 MG, 1X/DAY:QD, ORAL 2 MG, 1X/DAY:QD, ORAL 1 MG, 1X/DAY:QD, ORAL
     Route: 048
     Dates: start: 20091111, end: 20091112
  3. INTUNIV [Suspect]
     Indication: ATTENTION DEFICIT/HYPERACTIVITY DISORDER
     Dosage: 1 MG, 1X/DAY:QD, ORAL 2 MG, 1X/DAY:QD, ORAL 1 MG, 1X/DAY:QD, ORAL
     Route: 048
     Dates: start: 20091113

REACTIONS (5)
  - BRADYCARDIA [None]
  - DIZZINESS [None]
  - FATIGUE [None]
  - PRESYNCOPE [None]
  - SYNCOPE [None]
